FAERS Safety Report 7754256-8 (Version None)
Quarter: 2011Q3

REPORT INFORMATION
  Report Type: 
  Country: None (occurrence: None)
  Receive Date: 20110825
  Receipt Date: 20110718
  Transmission Date: 20111222
  Serious: No
  Sender: FDA-Public Use
  Company Number: 332574

PATIENT
  Age: 69 Year
  Sex: Female

DRUGS (3)
  1. METFORMIN HCL [Concomitant]
  2. VICTOZA [Suspect]
     Indication: TYPE 2 DIABETES MELLITUS
     Dosage: 1.2 MG, QD, SUBCUTANEOUS
     Route: 058
     Dates: start: 20110427, end: 20110708
  3. ZETIA [Concomitant]

REACTIONS (5)
  - DIARRHOEA [None]
  - APHAGIA [None]
  - DIZZINESS [None]
  - VOMITING [None]
  - BLOOD GLUCOSE INCREASED [None]
